FAERS Safety Report 17040502 (Version 1)
Quarter: 2019Q4

REPORT INFORMATION
  Report Type: Not Available
  Country: US (occurrence: US)
  Receive Date: 20191117
  Receipt Date: 20191117
  Transmission Date: 20200122
  Serious: No
  Sender: FDA-Public Use
  Company Number: US-NEUROCRINE BIOSCIENCES INC.-2019NBI03363

PATIENT
  Age: 64 Year
  Sex: Male

DRUGS (2)
  1. INGREZZA [Suspect]
     Active Substance: VALBENAZINE
     Indication: TARDIVE DYSKINESIA
     Route: 048
     Dates: start: 201807, end: 20190109
  2. INGREZZA [Suspect]
     Active Substance: VALBENAZINE
     Route: 048
     Dates: start: 20190110

REACTIONS (2)
  - Dry mouth [Not Recovered/Not Resolved]
  - Drooling [Not Recovered/Not Resolved]

NARRATIVE: CASE EVENT DATE: 20191003
